FAERS Safety Report 12779389 (Version 1)
Quarter: 2016Q3

REPORT INFORMATION
  Report Type: Spontaneous
  Country: US (occurrence: US)
  Receive Date: 20160926
  Receipt Date: 20160926
  Transmission Date: 20161109
  Serious: Yes (Hospitalization, Other)
  Sender: FDA-Public Use
  Company Number: US-BAYER-2016-179590

PATIENT
  Age: 16 Year
  Sex: Male

DRUGS (2)
  1. ROMILAR [Suspect]
     Active Substance: DEXTROMETHORPHAN HYDROBROMIDE
     Indication: DRUG ABUSE
     Dosage: 600 MG, OW TWO WEEKS BEFORE HIS HOSPITALIZATTION
  2. ROMILAR [Suspect]
     Active Substance: DEXTROMETHORPHAN HYDROBROMIDE
     Indication: DRUG ABUSE
     Dosage: 300 MG, THREE DAYS

REACTIONS (16)
  - Depressed mood [Recovering/Resolving]
  - Impulsive behaviour [Recovering/Resolving]
  - Energy increased [Recovering/Resolving]
  - Bipolar disorder [Recovering/Resolving]
  - Mania [Recovering/Resolving]
  - Grandiosity [Recovering/Resolving]
  - Distractibility [Recovering/Resolving]
  - Delusion [Recovering/Resolving]
  - Tearfulness [Recovering/Resolving]
  - Insomnia [Recovering/Resolving]
  - Drug abuse [None]
  - Euphoric mood [Recovering/Resolving]
  - Affect lability [Recovering/Resolving]
  - Abnormal behaviour [Recovering/Resolving]
  - Intentional overdose [None]
  - Toxicity to various agents [None]
